FAERS Safety Report 5664536-8 (Version None)
Quarter: 2008Q1

REPORT INFORMATION
  Report Type: 
  Country: None (occurrence: None)
  Receive Date: 20080311
  Receipt Date: 20080311
  Transmission Date: 20080703
  Serious: Yes (Life-Threatening, Hospitalization, Other)
  Sender: FDA-Public Use
  Company Number: None

PATIENT
  Age: 37 Year
  Sex: Male
  Weight: 136.0791 kg

DRUGS (5)
  1. CYMBALTA [Suspect]
     Indication: DEPRESSION
     Dosage: DAILY PO  1-2 MONTHS
     Route: 048
     Dates: start: 20060601, end: 20060723
  2. CYMBALTA [Suspect]
     Indication: FAMILIAL RISK FACTOR
     Dosage: DAILY PO  1-2 MONTHS
     Route: 048
     Dates: start: 20060601, end: 20060723
  3. LEXAPRO [Suspect]
     Indication: DEPRESSION
     Dosage: 10MG UP TO 40MG DAILY PO  13-14 MONTHS
     Route: 048
     Dates: start: 20060723, end: 20070810
  4. LEXAPRO [Suspect]
     Indication: FAMILIAL RISK FACTOR
     Dosage: 10MG UP TO 40MG DAILY PO  13-14 MONTHS
     Route: 048
     Dates: start: 20060723, end: 20070810
  5. REMERON [Concomitant]

REACTIONS (7)
  - AKATHISIA [None]
  - COMMUNICATION DISORDER [None]
  - MENTAL DISORDER [None]
  - MUSCLE CONTRACTIONS INVOLUNTARY [None]
  - SOCIAL AVOIDANT BEHAVIOUR [None]
  - SUICIDAL IDEATION [None]
  - TARDIVE DYSKINESIA [None]
